FAERS Safety Report 22242851 (Version 1)
Quarter: 2023Q2

REPORT INFORMATION
  Report Type: Report from Study
  Country: US (occurrence: US)
  Receive Date: 20230424
  Receipt Date: 20230424
  Transmission Date: 20230721
  Serious: Yes (Other)
  Sender: FDA-Public Use
  Company Number: US-ABBVIE-4736823

PATIENT
  Sex: Male

DRUGS (1)
  1. HUMIRA [Suspect]
     Active Substance: ADALIMUMAB
     Indication: Crohn^s disease
     Dosage: CITRATE FREE PEN
     Route: 058
     Dates: start: 20211019

REACTIONS (3)
  - Limb injury [Recovering/Resolving]
  - Skin oedema [Recovering/Resolving]
  - Localised infection [Recovering/Resolving]
